FAERS Safety Report 20329521 (Version 2)
Quarter: 2022Q1

REPORT INFORMATION
  Report Type: Spontaneous
  Country: US (occurrence: US)
  Receive Date: 20220112
  Receipt Date: 20220113
  Transmission Date: 20220423
  Serious: No
  Sender: FDA-Public Use
  Company Number: US-BEH-2022140305

PATIENT
  Age: 49 Year
  Sex: Female

DRUGS (1)
  1. PRIVIGEN [Suspect]
     Active Substance: HUMAN IMMUNOGLOBULIN G
     Indication: Sjogren^s syndrome
     Dosage: 40 GRAM
     Route: 042
     Dates: start: 20211231

REACTIONS (7)
  - Urticaria [Recovered/Resolved]
  - Dysuria [Recovered/Resolved]
  - Burning sensation [Recovered/Resolved]
  - Rash pruritic [Recovered/Resolved]
  - Dyspnoea [Recovered/Resolved]
  - No adverse event [Unknown]
  - Off label use [Unknown]

NARRATIVE: CASE EVENT DATE: 20211231
